FAERS Safety Report 21354049 (Version 2)
Quarter: 2022Q4

REPORT INFORMATION
  Report Type: Spontaneous
  Country: FR (occurrence: FR)
  Receive Date: 20220920
  Receipt Date: 20221117
  Transmission Date: 20230113
  Serious: Yes (Other)
  Sender: FDA-Public Use
  Company Number: FR-BIOGEN-2022BI01155415

PATIENT
  Sex: Female

DRUGS (1)
  1. TECFIDERA [Suspect]
     Active Substance: DIMETHYL FUMARATE
     Indication: Multiple sclerosis
     Dosage: 240 MG TWO TIMES PER DAY; MAINTENANCE DOSE
     Route: 050
     Dates: start: 202003, end: 202206

REACTIONS (2)
  - Magnetic resonance imaging abnormal [Unknown]
  - Lymphocyte count decreased [Recovered/Resolved]
